FAERS Safety Report 7162438-1 (Version None)
Quarter: 2010Q4

REPORT INFORMATION
  Report Type: 
  Country: None (occurrence: None)
  Receive Date: 20101215
  Receipt Date: 20091104
  Transmission Date: 20110411
  Serious: Yes (Other)
  Sender: FDA-Public Use
  Company Number: US-PFIZER INC-2009293914

PATIENT
  Sex: Female
  Weight: 47.71 kg

DRUGS (5)
  1. LYRICA [Suspect]
     Dosage: UNK
  2. HYDROXYZINE HCL [Suspect]
     Dosage: UNK
     Dates: start: 20091001
  3. KLONOPIN [Suspect]
     Indication: ANXIETY
     Dosage: 1 MG, 4X/DAY
     Route: 048
     Dates: start: 19910101
  4. ATENOLOL [Concomitant]
     Dosage: UNK
     Dates: start: 20090701
  5. ACETAMINOPHEN [Concomitant]
     Dosage: UNK

REACTIONS (20)
  - ANXIETY [None]
  - ARTHRITIS [None]
  - BITE [None]
  - BLOOD PRESSURE INCREASED [None]
  - CHRONIC OBSTRUCTIVE PULMONARY DISEASE [None]
  - DIARRHOEA [None]
  - DRUG EFFECT DECREASED [None]
  - EATING DISORDER [None]
  - FEELING ABNORMAL [None]
  - FEELING COLD [None]
  - FIBROMYALGIA [None]
  - LUNG NEOPLASM [None]
  - LYME DISEASE [None]
  - NAUSEA [None]
  - OSTEOARTHRITIS [None]
  - SOMNOLENCE [None]
  - SPINAL OSTEOARTHRITIS [None]
  - URINARY TRACT INFECTION [None]
  - VULVOVAGINAL PAIN [None]
  - WEIGHT DECREASED [None]
